FAERS Safety Report 16761413 (Version 2)
Quarter: 2019Q3

REPORT INFORMATION
  Report Type: Spontaneous
  Country: ZA (occurrence: ZA)
  Receive Date: 20190830
  Receipt Date: 20190903
  Transmission Date: 20191005
  Serious: Yes (Other)
  Sender: FDA-Public Use
  Company Number: ZA-PFIZER INC-2019363074

PATIENT
  Age: 52 Year
  Sex: Male

DRUGS (11)
  1. CORTISONE [Concomitant]
     Active Substance: CORTISONE
     Dosage: UNK
     Route: 030
     Dates: start: 20120126
  2. CORTISONE [Concomitant]
     Active Substance: CORTISONE
     Dosage: UNK
     Route: 030
     Dates: start: 20120614
  3. CORTISONE [Concomitant]
     Active Substance: CORTISONE
     Dosage: UNK
     Route: 030
     Dates: start: 20131211
  4. CORTISONE [Concomitant]
     Active Substance: CORTISONE
     Dosage: UNK
     Route: 030
     Dates: start: 20120202
  5. COXFLAM [Suspect]
     Active Substance: MELOXICAM
     Dosage: 15 MG, UNK
  6. PREDNISONE. [Suspect]
     Active Substance: PREDNISONE
     Dosage: 15 MG, 3X PER WEEK
     Dates: start: 20110324
  7. FOLIC ACID. [Suspect]
     Active Substance: FOLIC ACID
     Dosage: 5 MG, DAILY
  8. CORTISONE [Concomitant]
     Active Substance: CORTISONE
     Dosage: UNK
     Route: 030
     Dates: start: 20121206
  9. METHOTREXATE. [Suspect]
     Active Substance: METHOTREXATE
     Dosage: 15 MG, WEEKLY
     Dates: start: 20110324
  10. CORTISONE [Concomitant]
     Active Substance: CORTISONE
     Dosage: UNK
     Route: 030
     Dates: start: 20120223
  11. CORTISONE [Concomitant]
     Active Substance: CORTISONE
     Dosage: UNK
     Route: 030
     Dates: start: 20190613

REACTIONS (21)
  - Blood sodium decreased [Unknown]
  - Mean cell haemoglobin concentration decreased [Unknown]
  - Mean cell volume decreased [Unknown]
  - Total cholesterol/HDL ratio decreased [Unknown]
  - Red blood cell sedimentation rate increased [Unknown]
  - Rheumatoid factor increased [Unknown]
  - Mean cell haemoglobin decreased [Unknown]
  - Osteopenia [Unknown]
  - Red cell distribution width increased [Unknown]
  - Serum ferritin decreased [Unknown]
  - Spinal osteoarthritis [Unknown]
  - Osteoarthritis [Unknown]
  - C-reactive protein increased [Unknown]
  - Blood iron decreased [Unknown]
  - Platelet count decreased [Unknown]
  - Joint effusion [Unknown]
  - Monocyte count increased [Unknown]
  - Red blood cell count decreased [Unknown]
  - Low density lipoprotein decreased [Unknown]
  - Haemoglobin decreased [Unknown]
  - Haematocrit decreased [Unknown]

NARRATIVE: CASE EVENT DATE: 20130613
